FAERS Safety Report 4731625-1 (Version None)
Quarter: 2005Q3

REPORT INFORMATION
  Report Type: 
  Country: None (occurrence: None)
  Receive Date: 20050801
  Receipt Date: 20050801
  Transmission Date: 20060218
  Serious: Yes (Hospitalization)
  Sender: FDA-Public Use
  Company Number: None

PATIENT
  Age: 82 Year
  Sex: Male
  Weight: 125 kg

DRUGS (1)
  1. IMMUNE GLOBULIN 42 GM [Suspect]
     Indication: DEMYELINATION
     Dosage: 42 GM Q DAY INTRAVENOU
     Route: 042
     Dates: start: 20050509, end: 20050512

REACTIONS (8)
  - CONFUSIONAL STATE [None]
  - DYSURIA [None]
  - FEELING COLD [None]
  - HAEMATURIA [None]
  - HAEMODIALYSIS [None]
  - NAUSEA [None]
  - RENAL FAILURE ACUTE [None]
  - VOMITING [None]
